FAERS Safety Report 5021428-5 (Version None)
Quarter: 2006Q2

REPORT INFORMATION
  Report Type: 
  Country: None (occurrence: None)
  Receive Date: 20060608
  Receipt Date: 20050928
  Transmission Date: 20061013
  Serious: Yes (Death, Life-Threatening, Hospitalization, Disabling, Other)
  Sender: FDA-Public Use
  Company Number: CA-BRISTOL-MYERS SQUIBB COMPANY-13126370

PATIENT
  Age: 77 Year
  Sex: Male
  Weight: 102 kg

DRUGS (29)
  1. IRBESARTAN [Suspect]
     Indication: HYPERTENSION
     Dates: start: 20041112, end: 20050729
  2. WARFARIN [Suspect]
     Indication: PROPHYLAXIS
     Dates: start: 20041112, end: 20050729
  3. BLINDED: PLACEBO [Suspect]
     Indication: HYPERTENSION
     Dates: start: 20041112, end: 20050729
  4. VITAMIN K [Concomitant]
  5. LABETALOL [Concomitant]
     Route: 042
  6. DILANTIN [Concomitant]
     Route: 042
  7. NITROGLYCERIN [Concomitant]
  8. DIGOXIN [Concomitant]
  9. COMBIVENT [Concomitant]
  10. FUROSEMIDE [Concomitant]
  11. DILTIAZEM HCL [Concomitant]
  12. AMIODARONE [Concomitant]
  13. NITRO [Concomitant]
     Route: 041
  14. ZANTAC [Concomitant]
  15. MAGNESIUM SULFATE [Concomitant]
  16. TYLENOL SUPPOSITORIES [Concomitant]
  17. RIFAMPIN [Concomitant]
  18. CEFTRIAXONE [Concomitant]
  19. VANCOMYCIN [Concomitant]
  20. METOPROLOL [Concomitant]
  21. FOLIC ACID [Concomitant]
  22. CLOXACILLIN SODIUM [Concomitant]
  23. POTASSIUM [Concomitant]
  24. ALDACTONE [Concomitant]
  25. LEVOPHED [Concomitant]
  26. DIAMOX [Concomitant]
  27. ATROPINE [Concomitant]
  28. EPINEPHRINE [Concomitant]
  29. FLUCONAZOLE [Concomitant]

REACTIONS (2)
  - HAEMORRHAGE INTRACRANIAL [None]
  - RESPIRATORY FAILURE [None]
